FAERS Safety Report 11097892 (Version 1)
Quarter: 2015Q2

REPORT INFORMATION
  Report Type: Spontaneous
  Country: AU (occurrence: AU)
  Receive Date: 20150507
  Receipt Date: 20150507
  Transmission Date: 20150821
  Serious: Yes (Other)
  Sender: FDA-Public Use
  Company Number: AU-PFIZER INC-2015144917

PATIENT
  Sex: Female

DRUGS (4)
  1. LYRICA [Suspect]
     Active Substance: PREGABALIN
     Dosage: 225 MG, UNK
  2. LYRICA [Suspect]
     Active Substance: PREGABALIN
     Dosage: 75 UNK, UNK
  3. LYRICA [Suspect]
     Active Substance: PREGABALIN
     Indication: FIBROMYALGIA
     Dosage: 400 MG, DAILY
     Dates: start: 201411
  4. LYRICA [Suspect]
     Active Substance: PREGABALIN
     Dosage: 150 MG, UNK

REACTIONS (16)
  - Migraine [Unknown]
  - Vomiting [Unknown]
  - Suicidal ideation [Unknown]
  - Chest discomfort [Unknown]
  - Pain [Unknown]
  - Dizziness [Unknown]
  - Decreased appetite [Unknown]
  - Tinnitus [Unknown]
  - Hepatic pain [Unknown]
  - Gastrointestinal disorder [Unknown]
  - Anxiety [Unknown]
  - Alopecia [Unknown]
  - Memory impairment [Unknown]
  - Abdominal pain upper [Unknown]
  - Yellow skin [Unknown]
  - Constipation [Unknown]
